FAERS Safety Report 7968095-6 (Version None)
Quarter: 2011Q4

REPORT INFORMATION
  Report Type: 
  Country: None (occurrence: None)
  Receive Date: 20111121
  Receipt Date: 20110926
  Transmission Date: 20120403
  Serious: No
  Sender: FDA-Public Use
  Company Number: 1000023134

PATIENT
  Age: 45 Year
  Sex: Female
  Weight: 51.71 kg

DRUGS (12)
  1. DEXILANT (DEXLANSOPRAZOLE) (DEXLANSOPRAZOLE) [Concomitant]
  2. VIIBRYD [Suspect]
     Indication: DEPRESSION
     Dosage: 40 MG (40 MG, 1 IN 1 D), ORAL 20 MG (20 MG, 1 IN 1 D), ORAL
     Route: 048
     Dates: start: 20110904, end: 20110906
  3. VIIBRYD [Suspect]
     Indication: DEPRESSION
     Dosage: 40 MG (40 MG, 1 IN 1 D), ORAL 20 MG (20 MG, 1 IN 1 D), ORAL
     Route: 048
     Dates: start: 20110907
  4. XANAX [Concomitant]
  5. VIIBRYD [Suspect]
     Indication: DEPRESSION
     Dosage: 10 MG (10 MG, 1 IN 1 D), ORAL 20 MG (20 MG, 1 IN 1 D), ORAL
     Route: 048
     Dates: start: 20110821, end: 20110827
  6. VIIBRYD [Suspect]
     Indication: DEPRESSION
     Dosage: 10 MG (10 MG, 1 IN 1 D), ORAL 20 MG (20 MG, 1 IN 1 D), ORAL
     Route: 048
     Dates: start: 20110828, end: 20110903
  7. BENICAR [Concomitant]
  8. LIPITOR [Concomitant]
  9. MULTIVITAMINS (MULTIVITAMINS) (MULTIVITAMINS) [Concomitant]
  10. CALCIUM (CALCIUM) (CALCIUM) [Concomitant]
  11. ALIGN (BIFIDOBACTERIUM INFANTIS) (BIFIDOBACTERIUM INFANTIS) [Concomitant]
  12. FOSAMAX [Concomitant]

REACTIONS (11)
  - ASTHENIA [None]
  - FATIGUE [None]
  - VISION BLURRED [None]
  - INSOMNIA [None]
  - THINKING ABNORMAL [None]
  - CONFUSIONAL STATE [None]
  - DEPRESSION [None]
  - HYPERHIDROSIS [None]
  - WEIGHT DECREASED [None]
  - SLUGGISHNESS [None]
  - DECREASED APPETITE [None]
